FAERS Safety Report 16795661 (Version 1)
Quarter: 2019Q3

REPORT INFORMATION
  Report Type: Spontaneous
  Country: US (occurrence: US)
  Receive Date: 20190911
  Receipt Date: 20190911
  Transmission Date: 20191005
  Serious: Yes (Hospitalization, Other)
  Sender: FDA-Public Use
  Company Number: US-DRREDDYS-USA/USA/19/0114039

PATIENT
  Age: 56 Year
  Sex: Male

DRUGS (9)
  1. PREDNISONE. [Concomitant]
     Active Substance: PREDNISONE
     Dosage: REESCALATION OF PREDNISONE DOSING
  2. PREDNISONE. [Concomitant]
     Active Substance: PREDNISONE
  3. GEMCITABINE. [Suspect]
     Active Substance: GEMCITABINE
     Indication: TRANSITIONAL CELL CARCINOMA URETHRA
  4. CARBOPLATIN. [Suspect]
     Active Substance: CARBOPLATIN
     Indication: METASTASES TO LYMPH NODES
  5. CARBOPLATIN. [Suspect]
     Active Substance: CARBOPLATIN
     Indication: TRANSITIONAL CELL CARCINOMA URETHRA
  6. PREDNISONE. [Concomitant]
     Active Substance: PREDNISONE
     Dosage: SLOWER TAPERING
  7. PREDNISONE. [Concomitant]
     Active Substance: PREDNISONE
     Dosage: SLOWER TAPERING
  8. GEMCITABINE. [Suspect]
     Active Substance: GEMCITABINE
     Indication: METASTASES TO LYMPH NODES
  9. PREDNISONE. [Concomitant]
     Active Substance: PREDNISONE
     Indication: PHAEOCHROMOCYTOMA

REACTIONS (2)
  - Cytopenia [Unknown]
  - Infection [Unknown]
